FAERS Safety Report 7874745 (Version 2)
Quarter: 2014Q1

REPORT INFORMATION
  Report Type: Report from Study
  Country: JP (occurrence: JP)
  Receive Date: 20110328
  Receipt Date: 20140306
  Transmission Date: 20141002
  Serious: Yes (Hospitalization)
  Sender: FDA-Public Use
  Company Number: JP-BRISTOL-MYERS SQUIBB COMPANY-15527351

PATIENT
  Age: 83 Year
  Sex: Female
  Weight: 43 kg

DRUGS (9)
  1. SPRYCEL [Suspect]
     Indication: CHRONIC MYELOID LEUKAEMIA
     Dosage: THERAPY ON 17JAN11
     Route: 048
     Dates: start: 20100117, end: 20110118
  2. IRESSA [Suspect]
     Indication: LUNG NEOPLASM MALIGNANT
     Dosage: TAB,STOPPED ON 18JAN11.
     Route: 048
     Dates: start: 20100524
  3. VFEND [Suspect]
     Indication: PNEUMONIA
     Dosage: INTERRUPTED ON 18-JAN-2011?RESTARTED ON 25-JAN-2011
     Route: 048
     Dates: start: 20110106
  4. LYRICA [Concomitant]
     Dosage: CAP
     Route: 048
     Dates: start: 20101125
  5. NEUROTROPIN [Concomitant]
     Dosage: TABLET,1DF:16UNITS
     Route: 048
     Dates: start: 20100329
  6. MYSLEE [Concomitant]
     Dosage: TAB
     Route: 048
     Dates: start: 20100329
  7. CONIEL [Concomitant]
     Dosage: TAB
     Route: 048
     Dates: start: 20100329
  8. PARIET [Concomitant]
     Dosage: TAB
     Route: 048
     Dates: start: 20100329
  9. SOLDEM 3A [Concomitant]
     Dosage: INJECTION,SOLDEM 1 INJ 500ML/DAY FROM 18JAN11-21JAN11
     Route: 042
     Dates: start: 20110118, end: 20110124

REACTIONS (1)
  - Rhabdomyolysis [Recovered/Resolved]
